FAERS Safety Report 9032478 (Version 1)
Quarter: 2013Q1

REPORT INFORMATION
  Report Type: Spontaneous
  Country: GB (occurrence: None)
  Receive Date: 20130108
  Receipt Date: 20130108
  Transmission Date: 20140127
  Serious: Yes (Life-Threatening)
  Sender: FDA-Public Use
  Company Number: 1547700

PATIENT
  Age: 41 Year
  Sex: Male
  Weight: 40.82 kg

DRUGS (7)
  1. GENTAMICIN SULFATE [Suspect]
     Indication: ANTIBIOTIC PROPHYLAXIS
     Route: 042
     Dates: start: 20121217, end: 20121217
  2. (VANCOMYCIN HYDROCHLORIDE) [Suspect]
     Indication: PROPHYLAXIS
     Route: 042
     Dates: start: 20121217, end: 20121217
  3. FENTANYL [Concomitant]
  4. (PROPOFOL) [Concomitant]
  5. DEXAMETHASONE [Concomitant]
  6. ATRACURIUM [Concomitant]
  7. PARACETAMOL [Concomitant]

REACTIONS (1)
  - Anaphylactic reaction [None]
